FAERS Safety Report 4588787-9 (Version None)
Quarter: 2005Q1

REPORT INFORMATION
  Report Type: 
  Country: None (occurrence: None)
  Receive Date: 20050222
  Receipt Date: 20050211
  Transmission Date: 20050727
  Serious: Yes (Other)
  Sender: FDA-Public Use
  Company Number: DE-JNJFOC-20050202926

PATIENT
  Sex: Male
  Weight: 78 kg

DRUGS (3)
  1. TOPAMAX [Suspect]
     Indication: EPILEPSY
     Route: 049
     Dates: start: 20041101, end: 20050128
  2. LAMICTAL [Concomitant]
     Route: 049
  3. PETNIDAN [Concomitant]
     Route: 049

REACTIONS (2)
  - LEUKOPENIA [None]
  - NEUTROPENIA [None]
